FAERS Safety Report 17588290 (Version 2)
Quarter: 2020Q2

REPORT INFORMATION
  Report Type: Spontaneous
  Country: FR (occurrence: FR)
  Receive Date: 20200326
  Receipt Date: 20200518
  Transmission Date: 20200713
  Serious: Yes (Other)
  Sender: FDA-Public Use
  Company Number: FR-ALEXION-A201913880

PATIENT
  Age: 19 Year
  Sex: Female

DRUGS (8)
  1. BETAINE [Concomitant]
     Active Substance: BETAINE
     Indication: VITAMIN B12 DEFICIENCY
     Dosage: 12 G, QD
     Route: 065
  2. FOLINIC ACID [Concomitant]
     Active Substance: LEUCOVORIN
     Indication: VITAMIN B12 DEFICIENCY
     Dosage: 10 MG, QD
     Route: 065
  3. HYDROXOCOBALAMIN [Concomitant]
     Active Substance: HYDROXOCOBALAMIN
     Indication: VITAMIN B12 DEFICIENCY
     Dosage: 1 MG, QD
     Route: 030
  4. LEVOCARNITINE. [Concomitant]
     Active Substance: LEVOCARNITINE
     Indication: VITAMIN B12 DEFICIENCY
     Dosage: 3 G, QD
     Route: 065
  5. RITUXIMAB. [Concomitant]
     Active Substance: RITUXIMAB
     Indication: PRODUCT USED FOR UNKNOWN INDICATION
     Dosage: 375 MG/M2, QW, FOR 4 WEEKS
     Route: 065
  6. SOLIRIS [Suspect]
     Active Substance: ECULIZUMAB
     Indication: OFF LABEL USE
  7. SOLIRIS [Suspect]
     Active Substance: ECULIZUMAB
     Indication: VITAMIN B12 DEFICIENCY
     Dosage: 900 MG, QW
     Route: 065
  8. SOLIRIS [Suspect]
     Active Substance: ECULIZUMAB
     Indication: HAEMOLYTIC URAEMIC SYNDROME
     Dosage: UNK
     Route: 065

REACTIONS (6)
  - Blood homocysteine increased [Unknown]
  - Diffuse mesangial sclerosis [Unknown]
  - Renal impairment [Recovering/Resolving]
  - Haemolysis [Recovered/Resolved]
  - Complement factor increased [Unknown]
  - Off label use [Unknown]
